FAERS Safety Report 4537268-7 (Version None)
Quarter: 2004Q4

REPORT INFORMATION
  Report Type: 
  Country: None (occurrence: None)
  Receive Date: 20041223
  Receipt Date: 20030718
  Transmission Date: 20050328
  Serious: Yes (Other)
  Sender: FDA-Public Use
  Company Number: PHEH2003US06239

PATIENT
  Age: 51 Year
  Sex: Female

DRUGS (3)
  1. LAMISIL [Suspect]
     Indication: NAIL TINEA
     Dosage: UNK, QD
     Route: 048
     Dates: start: 20030606, end: 20030901
  2. PREMPRO [Concomitant]
  3. VICODIN ES [Concomitant]

REACTIONS (7)
  - DERMATITIS EXFOLIATIVE [None]
  - HYPERAESTHESIA [None]
  - PAIN [None]
  - PRURITUS [None]
  - RASH [None]
  - TEETH BRITTLE [None]
  - TOOTH EXTRACTION [None]
